FAERS Safety Report 5485004-2 (Version None)
Quarter: 2007Q4

REPORT INFORMATION
  Report Type: 
  Country: None (occurrence: None)
  Receive Date: 20071015
  Receipt Date: 20071004
  Transmission Date: 20080405
  Serious: Yes (Other)
  Sender: FDA-Public Use
  Company Number: PHBS2007KR16605

PATIENT
  Age: 43 Year
  Sex: Male

DRUGS (1)
  1. PIMECROLIMUS [Suspect]
     Indication: SEBORRHOEIC DERMATITIS
     Route: 061

REACTIONS (4)
  - LYMPHOCYTIC INFILTRATION [None]
  - PAIN OF SKIN [None]
  - RASH PAPULAR [None]
  - ROSACEA [None]
